FAERS Safety Report 7351588-2 (Version None)
Quarter: 2011Q1

REPORT INFORMATION
  Report Type: 
  Country: None (occurrence: None)
  Receive Date: 20110314
  Receipt Date: 20110307
  Transmission Date: 20110831
  Serious: Yes (Hospitalization, Other)
  Sender: FDA-Public Use
  Company Number: FR-BRISTOL-MYERS SQUIBB COMPANY-15421407

PATIENT
  Age: 40 Year
  Sex: Female

DRUGS (3)
  1. TAXOTERE [Suspect]
     Indication: BREAST CANCER
     Dosage: ALSO ON 15SEP2010
     Route: 042
     Dates: start: 20100826
  2. TAXOL [Suspect]
     Indication: BREAST CANCER
     Route: 042
     Dates: start: 20101007, end: 20101014
  3. HERCEPTIN [Suspect]
     Indication: BREAST CANCER
     Dosage: LAST DOSE RECEIVED ON 14OCT10
     Route: 042
     Dates: start: 20100825

REACTIONS (3)
  - ASCITES [None]
  - HEPATIC FIBROSIS [None]
  - VARICES OESOPHAGEAL [None]
